FAERS Safety Report 7155929-0 (Version None)
Quarter: 2010Q4

REPORT INFORMATION
  Report Type: 
  Country: None (occurrence: None)
  Receive Date: 20101214
  Receipt Date: 20101202
  Transmission Date: 20110411
  Serious: Yes (Hospitalization, Other)
  Sender: FDA-Public Use
  Company Number: JP-PFIZER INC-2010138573

PATIENT
  Age: 34 Year
  Sex: Female

DRUGS (3)
  1. AMLODIN [Suspect]
     Indication: HYPERTENSION
     Dosage: 500 MG, UNK
     Route: 048
     Dates: start: 20100726, end: 20100726
  2. AMLODIN [Suspect]
     Indication: SUICIDE ATTEMPT
  3. BLOPRESS [Suspect]
     Route: 048

REACTIONS (3)
  - DRUG TOXICITY [None]
  - HYPOTENSION [None]
  - OVERDOSE [None]
